FAERS Safety Report 18092072 (Version 1)
Quarter: 2020Q3

REPORT INFORMATION
  Report Type: Spontaneous
  Country: JP (occurrence: JP)
  Receive Date: 20200730
  Receipt Date: 20200730
  Transmission Date: 20201103
  Serious: Yes (Hospitalization, Other)
  Sender: FDA-Public Use
  Company Number: JP-LUPIN PHARMACEUTICALS INC.-2020-03914

PATIENT
  Sex: Male
  Weight: 2.82 kg

DRUGS (7)
  1. LEVOTHYROXINE. [Suspect]
     Active Substance: LEVOTHYROXINE
     Dosage: 100 MICROGRAM, QD
     Route: 064
  2. PROPYLTHIOURACIL. [Suspect]
     Active Substance: PROPYLTHIOURACIL
     Dosage: 50 MILLIGRAM, QD
     Route: 064
  3. LEVOTHYROXINE. [Suspect]
     Active Substance: LEVOTHYROXINE
     Indication: BASEDOW^S DISEASE
     Dosage: 25 MICROGRAM, QD
     Route: 064
  4. PROPYLTHIOURACIL. [Suspect]
     Active Substance: PROPYLTHIOURACIL
     Indication: BASEDOW^S DISEASE
     Dosage: 200 MILLIGRAM, QD
     Route: 064
  5. RITODRINE HYDROCHLORIDE [Suspect]
     Active Substance: RITODRINE HYDROCHLORIDE
     Indication: HYPERTHYROIDISM
     Dosage: CONTINUOUS DRIP ADMINISTRATION IN THE MOTHER
     Route: 064
  6. POTASSIUM [Suspect]
     Active Substance: POTASSIUM
     Indication: BASEDOW^S DISEASE
     Dosage: 50 MILLIGRAM, QD
     Route: 064
  7. PROPYLTHIOURACIL. [Suspect]
     Active Substance: PROPYLTHIOURACIL
     Dosage: 100 MILLIGRAM, QD
     Route: 064

REACTIONS (5)
  - Hypothyroidic goitre [Recovering/Resolving]
  - Foetal exposure during pregnancy [Unknown]
  - Hyperthyroidism [Recovering/Resolving]
  - Premature baby [Unknown]
  - Bone development abnormal [Recovering/Resolving]
